FAERS Safety Report 4837177-X (Version None)
Quarter: 2005Q4

REPORT INFORMATION
  Report Type: 
  Country: None (occurrence: None)
  Receive Date: 20051122
  Receipt Date: 20051115
  Transmission Date: 20060501
  Serious: Yes (Hospitalization)
  Sender: FDA-Public Use
  Company Number: 20052629

PATIENT
  Sex: Female

DRUGS (1)
  1. LIORESAL [Suspect]
     Indication: MUSCLE SPASTICITY
     Dosage: MCG, DAILY, INTRATHECAL
     Route: 037

REACTIONS (7)
  - APNOEA [None]
  - DEVICE FAILURE [None]
  - HYPOTONIA [None]
  - MUSCLE SPASMS [None]
  - OVERDOSE [None]
  - SEDATION [None]
  - SLEEP DISORDER [None]
